FAERS Safety Report 10057335 (Version 1)
Quarter: 2014Q2

REPORT INFORMATION
  Report Type: Report from Study
  Country: DE (occurrence: DE)
  Receive Date: 20140403
  Receipt Date: 20140403
  Transmission Date: 20141212
  Serious: Yes (Hospitalization)
  Sender: FDA-Public Use
  Company Number: DE-ABBVIE-14P-062-1217774-00

PATIENT
  Age: 48 Year
  Sex: Male
  Weight: 95 kg

DRUGS (6)
  1. HUMIRA [Suspect]
     Indication: CROHN^S DISEASE
     Route: 058
     Dates: start: 20120618
  2. ASA [Suspect]
     Indication: PRODUCT USED FOR UNKNOWN INDICATION
  3. ATACAND [Suspect]
     Indication: PRODUCT USED FOR UNKNOWN INDICATION
  4. STILNOX [Suspect]
     Indication: PRODUCT USED FOR UNKNOWN INDICATION
  5. VALDOXAN [Suspect]
     Indication: PRODUCT USED FOR UNKNOWN INDICATION
  6. VITAMIN B12 NOS [Concomitant]
     Indication: PRODUCT USED FOR UNKNOWN INDICATION

REACTIONS (6)
  - Incisional hernia [Recovered/Resolved]
  - Abdominal pain [Recovered/Resolved]
  - Fatigue [Not Recovered/Not Resolved]
  - Insomnia [Not Recovered/Not Resolved]
  - Nausea [Not Recovered/Not Resolved]
  - Crohn^s disease [Unknown]
